FAERS Safety Report 16775805 (Version 1)
Quarter: 2019Q3

REPORT INFORMATION
  Report Type: Spontaneous
  Country: US (occurrence: US)
  Receive Date: 20190905
  Receipt Date: 20190905
  Transmission Date: 20191005
  Serious: Yes (Other)
  Sender: FDA-Public Use
  Company Number: US-009507513-1909USA001560

PATIENT
  Age: 33 Year
  Sex: Male

DRUGS (14)
  1. COLISTIN [Concomitant]
     Active Substance: COLISTIN
  2. XARELTO [Concomitant]
     Active Substance: RIVAROXABAN
  3. VITAMIN D (UNSPECIFIED) [Concomitant]
     Active Substance: VITAMIN D NOS
  4. PHENOBARBITAL. [Concomitant]
     Active Substance: PHENOBARBITAL
  5. LIORESAL [Concomitant]
     Active Substance: BACLOFEN
  6. REGLAN [Concomitant]
     Active Substance: METOCLOPRAMIDE HYDROCHLORIDE
  7. ZERBAXA [Suspect]
     Active Substance: CEFTOLOZANE SULFATE\TAZOBACTAM SODIUM
     Indication: PNEUMONIA
     Dosage: UNK
  8. BANZEL [Concomitant]
     Active Substance: RUFINAMIDE
  9. IRON (UNSPECIFIED) [Concomitant]
     Active Substance: IRON
  10. ZERBAXA [Suspect]
     Active Substance: CEFTOLOZANE SULFATE\TAZOBACTAM SODIUM
     Dosage: 3G EVERY 8 HOURS FOR 14 DAYS
     Route: 042
     Dates: start: 20190819
  11. PHENYTOIN. [Concomitant]
     Active Substance: PHENYTOIN
  12. FERRO LIQUID [Concomitant]
  13. SINGULAIR [Concomitant]
     Active Substance: MONTELUKAST SODIUM
  14. LACOSAMIDE. [Concomitant]
     Active Substance: LACOSAMIDE

REACTIONS (1)
  - Seizure [Unknown]

NARRATIVE: CASE EVENT DATE: 201908
